FAERS Safety Report 7753353-0 (Version None)
Quarter: 2011Q3

REPORT INFORMATION
  Report Type: 
  Country: None (occurrence: None)
  Receive Date: 20110915
  Receipt Date: 20110901
  Transmission Date: 20111222
  Serious: Yes (Hospitalization)
  Sender: FDA-Public Use
  Company Number: FR-JNJFOC-2010012663

PATIENT
  Age: 63 Year
  Sex: Female

DRUGS (5)
  1. DEXTROSE [Concomitant]
     Indication: PRODUCT USED FOR UNKNOWN INDICATION
     Dosage: DAILY DOSE TEXT: UNKNOWN
     Route: 065
  2. CETIRIZINE HCL [Suspect]
  3. CETIRIZINE HCL [Suspect]
     Indication: FUNGAL SKIN INFECTION
  4. ANTIHYPERTENSIVES [Concomitant]
     Indication: HYPERTENSION
     Dosage: DAILY DOSE TEXT: UNKNOWN
     Route: 065
  5. KETOCONAZOLE [Concomitant]
     Indication: FUNGAL SKIN INFECTION
     Dosage: DAILY DOSE TEXT: 400 MG
     Route: 065

REACTIONS (4)
  - TORSADE DE POINTES [None]
  - CIRCULATORY COLLAPSE [None]
  - SYNCOPE [None]
  - ELECTROCARDIOGRAM QT PROLONGED [None]
